FAERS Safety Report 5754316-7 (Version None)
Quarter: 2008Q2

REPORT INFORMATION
  Report Type: 
  Country: None (occurrence: None)
  Receive Date: 20080530
  Receipt Date: 20080519
  Transmission Date: 20081010
  Serious: Yes (Disabling)
  Sender: FDA-Public Use
  Company Number: GB-PFIZER INC-2007107436

PATIENT
  Age: 42 Year
  Sex: Male

DRUGS (4)
  1. CHANTIX [Suspect]
     Indication: SMOKING CESSATION THERAPY
     Route: 048
     Dates: start: 20070911, end: 20071109
  2. BALSALAZIDE DISODIUM [Concomitant]
     Route: 048
  3. LOPERAMIDE HCL [Concomitant]
     Indication: COLITIS
     Route: 048
  4. OMEPRAZOLE [Concomitant]
     Indication: HIATUS HERNIA
     Route: 048

REACTIONS (4)
  - ANXIETY [None]
  - DEPRESSION [None]
  - DYSPHEMIA [None]
  - IMPAIRED WORK ABILITY [None]
